FAERS Safety Report 22263284 (Version 1)
Quarter: 2023Q2

REPORT INFORMATION
  Report Type: Spontaneous
  Country: US (occurrence: US)
  Receive Date: 20230428
  Receipt Date: 20230428
  Transmission Date: 20230722
  Serious: No
  Sender: FDA-Public Use
  Company Number: US-BRISTOL-MYERS SQUIBB COMPANY-2023-057677

PATIENT
  Age: 66 Year
  Sex: Female

DRUGS (1)
  1. POMALYST [Suspect]
     Active Substance: POMALIDOMIDE
     Indication: Plasmacytoma
     Dosage: DOSE : UNAVAILABLE;     FREQ : 1 DAILY X 21 DAYS, 7 DAYS OFF
     Route: 048
     Dates: start: 20220428, end: 20230413

REACTIONS (1)
  - Off label use [Unknown]
